FAERS Safety Report 12323272 (Version 2)
Quarter: 2016Q2

REPORT INFORMATION
  Report Type: Spontaneous
  Country: US (occurrence: US)
  Receive Date: 20160502
  Receipt Date: 20160503
  Transmission Date: 20160815
  Serious: Yes (Other)
  Sender: FDA-Public Use
  Company Number: US-JNJFOC-20160317492

PATIENT
  Age: 36 Year
  Sex: Female
  Weight: 73 kg

DRUGS (7)
  1. GABAPENTIN. [Concomitant]
     Active Substance: GABAPENTIN
     Indication: PAIN
     Dosage: AS NEEDED
     Route: 065
  2. FISH OIL [Concomitant]
     Active Substance: FISH OIL
     Route: 065
  3. REMICADE [Suspect]
     Active Substance: INFLIXIMAB
     Indication: CROHN^S DISEASE
     Route: 042
     Dates: start: 20150223
  4. REMICADE [Suspect]
     Active Substance: INFLIXIMAB
     Indication: CROHN^S DISEASE
     Route: 042
     Dates: start: 201502
  5. REMICADE [Suspect]
     Active Substance: INFLIXIMAB
     Indication: CROHN^S DISEASE
     Route: 042
     Dates: start: 20160208, end: 20160208
  6. GABAPENTIN. [Concomitant]
     Active Substance: GABAPENTIN
     Indication: PAIN
     Dosage: AS NEEDED
     Route: 065
     Dates: start: 201511
  7. VITAMIN D [Concomitant]
     Active Substance: CHOLECALCIFEROL
     Route: 065

REACTIONS (13)
  - Systemic lupus erythematosus rash [Recovered/Resolved]
  - Throat tightness [Recovered/Resolved]
  - Pharyngeal oedema [Recovered/Resolved]
  - Oropharyngeal pain [Not Recovered/Not Resolved]
  - Urticaria [Recovered/Resolved]
  - Lip swelling [Recovered/Resolved]
  - Dysphagia [Recovered/Resolved]
  - Eyelid oedema [Recovered/Resolved]
  - Product use issue [Unknown]
  - Off label use [Unknown]
  - Rash [Recovered/Resolved]
  - Pruritus [Recovered/Resolved]
  - Eye swelling [Recovered/Resolved]

NARRATIVE: CASE EVENT DATE: 201502
